FAERS Safety Report 9420213 (Version 1)
Quarter: 2013Q3

REPORT INFORMATION
  Report Type: Spontaneous
  Country: FR (occurrence: FR)
  Receive Date: 20130725
  Receipt Date: 20130725
  Transmission Date: 20140515
  Serious: Yes (Hospitalization)
  Sender: FDA-Public Use
  Company Number: FR-JNJFOC-20130712277

PATIENT
  Age: 51 Year
  Sex: Female

DRUGS (9)
  1. REMICADE [Suspect]
     Indication: RHEUMATOID ARTHRITIS
     Dosage: 100 MG
     Route: 042
     Dates: start: 200204, end: 20120511
  2. HUMIRA [Suspect]
     Indication: RHEUMATOID ARTHRITIS
     Route: 058
     Dates: start: 20120511
  3. CORTANCYL [Concomitant]
     Route: 048
  4. TOPALGIC LP [Concomitant]
     Route: 048
  5. FOLIC ACID [Concomitant]
     Route: 048
  6. INEXIUM [Concomitant]
     Dosage: 1 DF
     Route: 048
  7. LEVOTHYROX [Concomitant]
     Indication: HYPOTHYROIDISM
     Dosage: 1 DF
     Route: 048
  8. CALCIDOSE [Concomitant]
     Dosage: 1 DF
     Route: 048
  9. FLUCONAZOLE [Concomitant]
     Route: 048
     Dates: end: 20121121

REACTIONS (1)
  - Muscular weakness [Recovered/Resolved with Sequelae]
